FAERS Safety Report 5416582-7 (Version None)
Quarter: 2007Q3

REPORT INFORMATION
  Report Type: 
  Country: None (occurrence: None)
  Receive Date: 20070814
  Receipt Date: 20070814
  Transmission Date: 20080115
  Serious: Yes (Life-Threatening)
  Sender: FDA-Public Use
  Company Number: None

PATIENT
  Age: 48 Year
  Sex: Female
  Weight: 90.7194 kg

DRUGS (1)
  1. CRESTOR [Suspect]
     Indication: BLOOD CHOLESTEROL INCREASED
     Dosage: 10 MG 1 TABLET EVERY NT
     Dates: start: 20070623, end: 20070724

REACTIONS (4)
  - AMNESIA [None]
  - IMPAIRED WORK ABILITY [None]
  - NAUSEA [None]
  - RHABDOMYOLYSIS [None]
